FAERS Safety Report 10029824 (Version 4)
Quarter: 2014Q2

REPORT INFORMATION
  Report Type: Spontaneous
  Country: US (occurrence: None)
  Receive Date: 20140320
  Receipt Date: 20140605
  Transmission Date: 20141212
  Serious: Yes (Hospitalization)
  Sender: FDA-Public Use
  Company Number: UTC-045552

PATIENT
  Age: 34 Year
  Sex: Female
  Weight: 66.2 kg

DRUGS (2)
  1. TYVASO [Suspect]
     Indication: COR PULMONALE CHRONIC
     Route: 055
     Dates: start: 20140220
  2. XARELTO [Concomitant]

REACTIONS (7)
  - Sickle cell anaemia with crisis [None]
  - Hypertension [None]
  - Headache [None]
  - Throat irritation [None]
  - Blood count abnormal [None]
  - Protein urine present [None]
  - Tachycardia [None]
